FAERS Safety Report 8114871-9 (Version None)
Quarter: 2012Q1

REPORT INFORMATION
  Report Type: 
  Country: None (occurrence: None)
  Receive Date: 20120206
  Receipt Date: 20120203
  Transmission Date: 20120608
  Serious: Yes (Other)
  Sender: FDA-Public Use
  Company Number: TN-PFIZER INC-2012003064

PATIENT
  Age: 50 Year
  Sex: Male

DRUGS (2)
  1. AMARYL [Concomitant]
     Indication: DIABETES MELLITUS
     Dosage: UNK
  2. SUTENT [Suspect]
     Indication: METASTATIC RENAL CELL CARCINOMA
     Dosage: 50 MG, 1X/DAY
     Route: 048

REACTIONS (4)
  - ABDOMINAL PAIN [None]
  - PORTAL VEIN THROMBOSIS [None]
  - DEEP VEIN THROMBOSIS [None]
  - ASTHENIA [None]
